FAERS Safety Report 23937417 (Version 2)
Quarter: 2024Q2

REPORT INFORMATION
  Report Type: Spontaneous
  Country: FR (occurrence: FR)
  Receive Date: 20240604
  Receipt Date: 20240620
  Transmission Date: 20240716
  Serious: Yes (Hospitalization, Other)
  Sender: FDA-Public Use
  Company Number: None

PATIENT
  Age: 15 Year
  Sex: Female
  Weight: 60 kg

DRUGS (2)
  1. ZOLOFT [Suspect]
     Active Substance: SERTRALINE HYDROCHLORIDE
     Indication: Mixed anxiety and depressive disorder
     Dosage: 50 MILLIGRAM
     Route: 048
     Dates: start: 202312
  2. ATARAX [Suspect]
     Active Substance: HYDROXYZINE HYDROCHLORIDE
     Indication: Product used for unknown indication
     Dosage: 175 MILLIGRAM
     Route: 048
     Dates: start: 20240303, end: 20240303

REACTIONS (2)
  - Rhabdomyolysis [Recovering/Resolving]
  - Poisoning deliberate [Unknown]

NARRATIVE: CASE EVENT DATE: 20240303
